FAERS Safety Report 6188376-9 (Version None)
Quarter: 2009Q2

REPORT INFORMATION
  Report Type: 
  Country: None (occurrence: None)
  Receive Date: 20090511
  Receipt Date: 20090428
  Transmission Date: 20091009
  Serious: Yes (Death)
  Sender: FDA-Public Use
  Company Number: 2008-02200

PATIENT
  Age: 36 Year
  Sex: Female

DRUGS (2)
  1. VELCADE [Suspect]
     Indication: MULTIPLE MYELOMA
     Dosage: 1.9 MG, INTRAVENOUS
     Route: 042
     Dates: start: 20080530, end: 20080626
  2. DEXAMETHASONE 4MG TAB [Concomitant]

REACTIONS (6)
  - MALIGNANT NEOPLASM PROGRESSION [None]
  - MULTIPLE MYELOMA [None]
  - NEUTROPHIL COUNT DECREASED [None]
  - PLATELET COUNT DECREASED [None]
  - PURPURA [None]
  - WHITE BLOOD CELL COUNT DECREASED [None]
